FAERS Safety Report 11631927 (Version 2)
Quarter: 2017Q3

REPORT INFORMATION
  Report Type: Spontaneous
  Country: US (occurrence: US)
  Receive Date: 20151015
  Receipt Date: 20170928
  Transmission Date: 20171127
  Serious: Yes (Death, Hospitalization)
  Sender: FDA-Public Use
  Company Number: US-CIPLA LTD.-2015US07953

PATIENT

DRUGS (1)
  1. LAMOTRIGINE. [Suspect]
     Active Substance: LAMOTRIGINE
     Indication: BIPOLAR DISORDER
     Dosage: 4 G, (ENTIRE BOTTLE)
     Route: 048

REACTIONS (17)
  - Metabolic acidosis [Unknown]
  - Encephalopathy [Unknown]
  - Aspiration [Unknown]
  - Acute kidney injury [Unknown]
  - Sinus tachycardia [Unknown]
  - Intentional overdose [Unknown]
  - Generalised tonic-clonic seizure [Recovered/Resolved]
  - Death [Fatal]
  - Pneumonia bacterial [Unknown]
  - Atrioventricular block complete [Unknown]
  - Pulse absent [Recovered/Resolved]
  - Disseminated intravascular coagulation [Unknown]
  - Multiple organ dysfunction syndrome [Unknown]
  - Rhabdomyolysis [Unknown]
  - Respiratory arrest [Unknown]
  - Respiratory acidosis [Unknown]
  - Mental status changes [Unknown]
